FAERS Safety Report 7364582-2 (Version None)
Quarter: 2011Q1

REPORT INFORMATION
  Report Type: 
  Country: None (occurrence: None)
  Receive Date: 20110316
  Receipt Date: 20110316
  Transmission Date: 20110831
  Serious: Yes (Other)
  Sender: FDA-Public Use
  Company Number: None

PATIENT
  Sex: Female
  Weight: 74.8435 kg

DRUGS (1)
  1. CLINDAMYCIN HCL [Suspect]
     Indication: TOOTH EXTRACTION
     Dosage: 150 MG 4 A DAY 10 DAYS
     Dates: start: 20110204, end: 20110213

REACTIONS (2)
  - GASTROINTESTINAL DISORDER [None]
  - CLOSTRIDIAL INFECTION [None]
